FAERS Safety Report 10867170 (Version 2)
Quarter: 2015Q1

REPORT INFORMATION
  Report Type: Spontaneous
  Country: JP (occurrence: JP)
  Receive Date: 20150225
  Receipt Date: 20150303
  Transmission Date: 20150721
  Serious: Yes (Hospitalization)
  Sender: FDA-Public Use
  Company Number: JP-ASTRAZENECA-2015SE17142

PATIENT
  Sex: Male

DRUGS (1)
  1. BICALUTAMIDE. [Suspect]
     Active Substance: BICALUTAMIDE
     Dosage: NON-ASTRAZENECA GENERIC, 80 MG DAILY
     Route: 048

REACTIONS (2)
  - Hepatic function abnormal [Unknown]
  - Cholelithiasis [Unknown]
